FAERS Safety Report 17561033 (Version 1)
Quarter: 2020Q1

REPORT INFORMATION
  Report Type: Report from Study
  Country: EG (occurrence: EG)
  Receive Date: 20200319
  Receipt Date: 20200319
  Transmission Date: 20200409
  Serious: Yes (Disabling, Other)
  Sender: FDA-Public Use
  Company Number: NVSC2020EG075873

PATIENT
  Age: 65 Year
  Sex: Male

DRUGS (1)
  1. GLIVEC [Suspect]
     Active Substance: IMATINIB MESYLATE
     Indication: CHRONIC MYELOID LEUKAEMIA
     Dosage: UNK 4 CAP QD
     Route: 065
     Dates: start: 201812

REACTIONS (6)
  - Memory impairment [Not Recovered/Not Resolved]
  - Cerebral thrombosis [Unknown]
  - Hyperglycaemia [Recovering/Resolving]
  - Nerve injury [Unknown]
  - Blindness unilateral [Not Recovered/Not Resolved]
  - Intraocular pressure test abnormal [Not Recovered/Not Resolved]

NARRATIVE: CASE EVENT DATE: 201906
